FAERS Safety Report 4953086-X (Version None)
Quarter: 2006Q1

REPORT INFORMATION
  Report Type: 
  Country: None (occurrence: None)
  Receive Date: 20060324
  Receipt Date: 20060316
  Transmission Date: 20060701
  Serious: Yes (Hospitalization)
  Sender: FDA-Public Use
  Company Number: 2006CG00517

PATIENT
  Age: 31 Year
  Sex: Male

DRUGS (8)
  1. MOPRAL [Suspect]
     Route: 048
     Dates: start: 20000615
  2. CORTANCYL [Suspect]
     Indication: POLYARTERITIS NODOSA
     Route: 048
     Dates: start: 20000615
  3. CORTANCYL [Suspect]
     Indication: PERICARDITIS
     Route: 048
     Dates: start: 20000615
  4. ENDOXAN [Suspect]
     Indication: POLYARTERITIS NODOSA
     Route: 042
     Dates: start: 20041122, end: 20041129
  5. ENDOXAN [Suspect]
     Indication: PERICARDITIS
     Route: 042
     Dates: start: 20041122, end: 20041129
  6. ENDOXAN [Suspect]
     Dates: start: 20050103, end: 20050105
  7. ENDOXAN [Suspect]
     Dates: start: 20050103, end: 20050105
  8. CACIT D3 [Suspect]
     Route: 048

REACTIONS (4)
  - EFFUSION [None]
  - JUVENILE ARTHRITIS [None]
  - PERICARDITIS [None]
  - POLYARTERITIS NODOSA [None]
